FAERS Safety Report 4903721-7 (Version None)
Quarter: 2006Q1

REPORT INFORMATION
  Report Type: 
  Country: None (occurrence: None)
  Receive Date: 20060203
  Receipt Date: 20060123
  Transmission Date: 20060701
  Serious: Yes (Hospitalization)
  Sender: FDA-Public Use
  Company Number: B0408413A

PATIENT
  Age: 33 Year
  Sex: Male

DRUGS (2)
  1. LAMICTAL [Suspect]
     Indication: CONVULSION
  2. MULTI-VITAMIN [Concomitant]

REACTIONS (9)
  - CHOLESTASIS [None]
  - DIALYSIS [None]
  - ENCEPHALOPATHY [None]
  - EOSINOPHILIA [None]
  - HEPATIC FAILURE [None]
  - HEPATIC STEATOSIS [None]
  - LEUKOCYTOSIS [None]
  - RENAL FAILURE [None]
  - THERAPY NON-RESPONDER [None]
